FAERS Safety Report 21069821 (Version 1)
Quarter: 2022Q3

REPORT INFORMATION
  Report Type: Spontaneous
  Country: GB (occurrence: GB)
  Receive Date: 20220712
  Receipt Date: 20220712
  Transmission Date: 20221027
  Serious: Yes (Disabling, Other)
  Sender: FDA-Public Use
  Company Number: GB-MHRA-MED-202207040908317740-YWNPM

PATIENT
  Age: 67 Year
  Sex: Female
  Weight: 87 kg

DRUGS (2)
  1. APIXABAN [Suspect]
     Active Substance: APIXABAN
     Indication: Adverse drug reaction
     Dosage: 5 MILLIGRAM, QOD (5MG X 2 DAY)
     Route: 065
     Dates: start: 20210430
  2. AMLODIPINE [Concomitant]
     Active Substance: AMLODIPINE BESYLATE
     Indication: Hypertension
     Dosage: UNK
     Route: 065

REACTIONS (9)
  - Neuropathy peripheral [Not Recovered/Not Resolved]
  - Fatigue [Recovering/Resolving]
  - Muscular weakness [Recovered/Resolved with Sequelae]
  - Pruritus [Recovered/Resolved]
  - Alopecia [Recovered/Resolved with Sequelae]
  - Insomnia [Recovering/Resolving]
  - Arthralgia [Recovered/Resolved]
  - Constipation [Recovering/Resolving]
  - Medication error [Unknown]

NARRATIVE: CASE EVENT DATE: 20210513
